FAERS Safety Report 10258434 (Version 2)
Quarter: 2014Q3

REPORT INFORMATION
  Report Type: Report from Study
  Country: DE (occurrence: PL)
  Receive Date: 20140625
  Receipt Date: 20140821
  Transmission Date: 20150326
  Serious: Yes (Death, Hospitalization)
  Sender: FDA-Public Use
  Company Number: DE-ACTELION-A-NJ2013-100432

PATIENT

DRUGS (2)
  1. VENTAVIS [Suspect]
     Active Substance: ILOPROST
     Indication: PRODUCT USED FOR UNKNOWN INDICATION
     Route: 055
  2. ACENOCOUMAROL [Suspect]
     Active Substance: ACENOCOUMAROL
     Indication: PRODUCT USED FOR UNKNOWN INDICATION
     Route: 065

REACTIONS (3)
  - Labelled drug-drug interaction medication error [Unknown]
  - Gastrointestinal haemorrhage [Unknown]
  - Pulmonary arterial hypertension [Fatal]

NARRATIVE: CASE EVENT DATE: 201307
